FAERS Safety Report 7535809-9 (Version None)
Quarter: 2011Q2

REPORT INFORMATION
  Report Type: 
  Country: None (occurrence: None)
  Receive Date: 20110609
  Receipt Date: 20110603
  Transmission Date: 20111010
  Serious: Yes (Other)
  Sender: FDA-Public Use
  Company Number: US-ABBOTT-11P-163-0730444-00

PATIENT
  Sex: Male
  Weight: 122.58 kg

DRUGS (3)
  1. SWINE FLU VACCINE [Suspect]
     Indication: IMMUNISATION
     Dates: start: 20100118, end: 20100118
  2. HUMIRA [Suspect]
     Indication: RHEUMATOID ARTHRITIS
     Route: 058
     Dates: start: 20050101, end: 20090101
  3. HUMIRA [Suspect]
     Indication: RHEUMATOID ARTHRITIS
     Route: 058
     Dates: start: 20110501

REACTIONS (18)
  - FATIGUE [None]
  - LUNG DISORDER [None]
  - WHEEZING [None]
  - INCREASED UPPER AIRWAY SECRETION [None]
  - TINNITUS [None]
  - MASS [None]
  - PAIN IN EXTREMITY [None]
  - HYPERCAPNIA [None]
  - SCAB [None]
  - HEADACHE [None]
  - CHEST PAIN [None]
  - PROCEDURAL COMPLICATION [None]
  - CHONDROPATHY [None]
  - JOINT EFFUSION [None]
  - FEELING ABNORMAL [None]
  - ARTHRALGIA [None]
  - CEREBRAL DISORDER [None]
  - HYPOAESTHESIA [None]
